FAERS Safety Report 4603873-2 (Version None)
Quarter: 2005Q1

REPORT INFORMATION
  Report Type: 
  Country: None (occurrence: None)
  Receive Date: 20050308
  Receipt Date: 20050222
  Transmission Date: 20050727
  Serious: Yes (Other)
  Sender: FDA-Public Use
  Company Number: 2005BI002015

PATIENT
  Age: 54 Year
  Sex: Female

DRUGS (3)
  1. AVONEX [Suspect]
     Indication: MULTIPLE SCLEROSIS
     Dosage: 30 UG;QW; IM
     Route: 030
     Dates: start: 19961001, end: 19961025
  2. MULTI-VITAMIN [Concomitant]
  3. CALCIUM SUPPLEMENT [Concomitant]

REACTIONS (3)
  - ANXIETY [None]
  - FATIGUE [None]
  - RESPIRATORY DISTRESS [None]
